FAERS Safety Report 7978856-5 (Version None)
Quarter: 2011Q4

REPORT INFORMATION
  Report Type: 
  Country: None (occurrence: None)
  Receive Date: 20111214
  Receipt Date: 20111208
  Transmission Date: 20120403
  Serious: Yes (Hospitalization, Other)
  Sender: FDA-Public Use
  Company Number: US-ROXANE LABORATORIES, INC.-2011-RO-01775RO

PATIENT
  Age: 30 Year
  Sex: Female

DRUGS (3)
  1. NAPROXEN [Suspect]
  2. NAPROXEN [Suspect]
     Indication: ARTHRALGIA
  3. PREDNISONE [Suspect]
     Indication: SYSTEMIC LUPUS ERYTHEMATOSUS

REACTIONS (4)
  - LIVER INJURY [None]
  - CHOLESTASIS [None]
  - BIOPSY BILE DUCT ABNORMAL [None]
  - PANCREATITIS [None]
